FAERS Safety Report 21753606 (Version 4)
Quarter: 2023Q1

REPORT INFORMATION
  Report Type: Spontaneous
  Country: US (occurrence: US)
  Receive Date: 20221220
  Receipt Date: 20230208
  Transmission Date: 20230417
  Serious: Yes (Other)
  Sender: FDA-Public Use
  Company Number: US-002147023-NVSC2022US293630

PATIENT
  Age: 84 Year
  Sex: Male

DRUGS (33)
  1. TAFINLAR [Suspect]
     Active Substance: DABRAFENIB MESYLATE
     Indication: Thyroid cancer metastatic
     Dosage: 2 DOSAGE FORM, BID (WITH WATER ON EMPTY STOMACH, 1 HOUR BEFORE OR 2 HOURS AFTER MEAL)
     Route: 048
     Dates: start: 20221114
  2. TAFINLAR [Suspect]
     Active Substance: DABRAFENIB MESYLATE
     Dosage: 150 MG, Q12H
     Route: 048
     Dates: start: 20221120
  3. TAFINLAR [Suspect]
     Active Substance: DABRAFENIB MESYLATE
     Dosage: UNK
     Route: 065
     Dates: start: 20221124
  4. TAFINLAR [Suspect]
     Active Substance: DABRAFENIB MESYLATE
     Dosage: 75 MG, BID
     Route: 065
     Dates: start: 20221129, end: 20230117
  5. MEKINIST [Suspect]
     Active Substance: TRAMETINIB DIMETHYL SULFOXIDE
     Indication: Thyroid cancer metastatic
     Dosage: 1 DOSAGE FORM, QD (TAKE WITH WATER ON AN EMPTY STOMACH, 1 HOUR BEFORE OR 2 HOURS AFTER A MEAL)
     Route: 048
     Dates: start: 20221114
  6. MEKINIST [Suspect]
     Active Substance: TRAMETINIB DIMETHYL SULFOXIDE
     Dosage: 2 MG, QD
     Route: 048
     Dates: start: 20221120
  7. MEKINIST [Suspect]
     Active Substance: TRAMETINIB DIMETHYL SULFOXIDE
     Dosage: UNK
     Route: 065
     Dates: start: 20221124, end: 20221223
  8. MEKINIST [Suspect]
     Active Substance: TRAMETINIB DIMETHYL SULFOXIDE
     Dosage: 3 DOSAGE FORM, QD (TAKE WITH WATER ON AN EMPTY STOMACH, 1 HOUR BEFORE OR 2 HOURS AFTER A MEAL)
     Route: 048
     Dates: start: 20221223
  9. MEKINIST [Suspect]
     Active Substance: TRAMETINIB DIMETHYL SULFOXIDE
     Dosage: 1 DOSAGE FORM, QD (TAKE WITH WATER ON AN EMPTY STOMACH, 1 HOUR BEFORE OR 2 HOUR AFTER A MEAL)
     Route: 048
     Dates: end: 20230117
  10. TYLENOL [Concomitant]
     Active Substance: ACETAMINOPHEN
     Indication: Product used for unknown indication
     Dosage: 500 MG, PRN
     Route: 048
     Dates: end: 20230117
  11. TYLENOL [Concomitant]
     Active Substance: ACETAMINOPHEN
     Dosage: UNK, PRN
     Route: 065
  12. SINEMET [Concomitant]
     Active Substance: CARBIDOPA\LEVODOPA
     Indication: Parkinsonism
     Dosage: 0.5 DOSAGE FORM, QD (FOLLOW TITRATION CHART FOR 6 WEEKS UNTIL AT 1 TAB THREE TIMES A DAY)
     Route: 065
     Dates: start: 20230104
  13. MARINOL [Concomitant]
     Active Substance: DRONABINOL
     Indication: Nausea
     Dosage: 1 DOSAGE FORM, BID (BEFORE MEALS)
     Route: 048
     Dates: start: 20221130
  14. MARINOL [Concomitant]
     Active Substance: DRONABINOL
     Indication: Vomiting
  15. DRISDOL [Concomitant]
     Active Substance: ERGOCALCIFEROL
     Indication: Product used for unknown indication
     Dosage: 1 DOSAGE FORM, QW (STRENGHT: 50,000 UNIT) (MONDAYS)
     Route: 048
     Dates: end: 20230117
  16. DRISDOL [Concomitant]
     Active Substance: ERGOCALCIFEROL
     Dosage: UNK (TAKE 1 EACH AS INSTRUCTED 3 TIMES A WEEK))
     Route: 065
  17. CLARITIN [Concomitant]
     Active Substance: LORATADINE
     Indication: Product used for unknown indication
     Dosage: 1 DOSAGE FORM, QD
     Route: 048
  18. MEGACE [Concomitant]
     Active Substance: MEGESTROL ACETATE
     Indication: Cachexia
     Dosage: 1 DOSAGE FORM, BID (DUE TO MALIGNANT NEOPLASTIC DISEASE, PATIENT NOT TAKING: REPORTED ON 20 DEC 2022
     Route: 048
     Dates: start: 20221216, end: 20230117
  19. GLUMETZA [Concomitant]
     Active Substance: METFORMIN HYDROCHLORIDE
     Indication: Product used for unknown indication
     Dosage: 1 DOSAGE FORM, QD (WITH BREAKFAST) (24 HR TABLET)
     Route: 048
     Dates: end: 20230119
  20. FISH OIL [Concomitant]
     Active Substance: FISH OIL
     Indication: Product used for unknown indication
     Dosage: 1 DOSAGE FORM (300-1,000 MG) (NIGHTLY AT BEDTIME, DR CAPSULE)
     Route: 048
     Dates: end: 20230119
  21. ZOFRAN [Concomitant]
     Active Substance: ONDANSETRON HYDROCHLORIDE
     Indication: Nausea
     Dosage: 1 DOSAGE FORM, Q8H (AS NEEDED)
     Route: 048
     Dates: start: 20221201
  22. ZOFRAN [Concomitant]
     Active Substance: ONDANSETRON HYDROCHLORIDE
     Indication: Vomiting
  23. COMPAZINE [Concomitant]
     Active Substance: PROCHLORPERAZINE MALEATE
     Indication: Nausea
     Dosage: 1 DOSAGE FORM, Q6H (AS NEEDED)
     Route: 048
     Dates: start: 20221215
  24. COMPAZINE [Concomitant]
     Active Substance: PROCHLORPERAZINE MALEATE
     Indication: Vomiting
  25. CRESTOR [Concomitant]
     Active Substance: ROSUVASTATIN CALCIUM
     Indication: Arteriosclerosis
     Dosage: 1 DOSAGE FORM, QD
     Route: 048
     Dates: start: 20221108
  26. SYNTHROID [Concomitant]
     Active Substance: LEVOTHYROXINE SODIUM
     Indication: Thyroid cancer
     Dosage: 6 DOSAGE FORM, QW
     Route: 065
     Dates: start: 20221221
  27. SYNTHROID [Concomitant]
     Active Substance: LEVOTHYROXINE SODIUM
     Dosage: 1 DOSAGE FORM (SIX TIMES A WEEK, ON MONDAY, TUESDAY, WEDNESDAY, THURSDAY, FRIDAY AND SATURDAY, DO NO
     Route: 048
  28. DIETARY SUPPLEMENT\RESVERATROL [Concomitant]
     Active Substance: DIETARY SUPPLEMENT\RESVERATROL
     Indication: Cardiovascular disorder
     Dosage: 250 MG (NIGHTLY AT BEDTIME)
     Route: 048
     Dates: end: 20230119
  29. PLAVIX [Concomitant]
     Active Substance: CLOPIDOGREL BISULFATE
     Indication: Thrombosis prophylaxis
     Dosage: 1 DOSAGE FORM, QD
     Route: 048
     Dates: start: 20220620, end: 20230111
  30. MELATONIN [Concomitant]
     Active Substance: MELATONIN
     Indication: Sleep disorder
     Dosage: 10 MG (NIGHTLY AT BEDTIME. SLEEP AIDE)
     Route: 048
  31. CIALIS [Concomitant]
     Active Substance: TADALAFIL
     Indication: Erectile dysfunction
     Dosage: 1 DOSAGE FORM, QD
     Route: 048
  32. ASPIRIN [Concomitant]
     Active Substance: ASPIRIN
     Indication: Product used for unknown indication
     Dosage: UNK
     Route: 065
  33. ELIQUIS [Concomitant]
     Active Substance: APIXABAN
     Indication: Thrombosis prophylaxis
     Dosage: UNK
     Route: 065

REACTIONS (40)
  - Metastasis [Unknown]
  - Metastases to lung [Unknown]
  - Prostate cancer [Unknown]
  - Second primary malignancy [Unknown]
  - Parkinson^s disease [Unknown]
  - Electrocardiogram ST-T segment abnormal [Unknown]
  - Post procedural hypothyroidism [Unknown]
  - Hyperlipidaemia [Unknown]
  - Pulmonary infarction [Unknown]
  - Pulmonary embolism [Unknown]
  - Malignant neoplasm progression [Unknown]
  - Diastolic dysfunction [Unknown]
  - Thyroid cancer metastatic [Unknown]
  - Tooth injury [Unknown]
  - Confusional state [Unknown]
  - Fall [Unknown]
  - Weight decreased [Unknown]
  - Dizziness [Unknown]
  - Toxicity to various agents [Unknown]
  - Appetite disorder [Unknown]
  - Disturbance in attention [Unknown]
  - Pain [Unknown]
  - Essential tremor [Unknown]
  - Somnolence [Unknown]
  - Dysarthria [Unknown]
  - Chest pain [Unknown]
  - Contusion [Unknown]
  - Lymphadenopathy [Unknown]
  - White blood cell count decreased [Unknown]
  - Haemoglobin decreased [Unknown]
  - Platelet count decreased [Unknown]
  - Protein total decreased [Unknown]
  - Blood albumin decreased [Unknown]
  - Asthenia [Unknown]
  - Dyspnoea [Unknown]
  - Tremor [Unknown]
  - Cough [Recovering/Resolving]
  - Rhonchi [Unknown]
  - Fatigue [Unknown]
  - Drug intolerance [Unknown]

NARRATIVE: CASE EVENT DATE: 20221220
